FAERS Safety Report 22081267 (Version 1)
Quarter: 2023Q1

REPORT INFORMATION
  Report Type: Spontaneous
  Country: JP (occurrence: JP)
  Receive Date: 20230309
  Receipt Date: 20230309
  Transmission Date: 20230418
  Serious: Yes (Hospitalization)
  Sender: FDA-Public Use
  Company Number: JP-CHUGAI-2023007671

PATIENT
  Age: 6 Decade
  Sex: Male

DRUGS (1)
  1. HEMLIBRA [Suspect]
     Active Substance: EMICIZUMAB-KXWH
     Indication: Haemophilia A without inhibitors
     Dosage: 150 MILLIGRAM, ONCE/2WEEKS
     Route: 058
     Dates: start: 20221102

REACTIONS (1)
  - Fracture [Not Recovered/Not Resolved]

NARRATIVE: CASE EVENT DATE: 20230215
